FAERS Safety Report 13174988 (Version 1)
Quarter: 2017Q1

REPORT INFORMATION
  Report Type: Spontaneous
  Country: US (occurrence: US)
  Receive Date: 20170131
  Receipt Date: 20170131
  Transmission Date: 20170428
  Serious: Yes (Other)
  Sender: FDA-Public Use
  Company Number: None

PATIENT
  Age: 53 Year
  Sex: Female
  Weight: 83.01 kg

DRUGS (1)
  1. DULOXETINE 60MG [Suspect]
     Active Substance: DULOXETINE
     Indication: NEUROPATHY PERIPHERAL
     Route: 048
     Dates: start: 20170113, end: 20170117

REACTIONS (3)
  - Neuralgia [None]
  - Dizziness [None]
  - Fatigue [None]

NARRATIVE: CASE EVENT DATE: 20170113
